FAERS Safety Report 25529647 (Version 4)
Quarter: 2025Q3

REPORT INFORMATION
  Report Type: Spontaneous
  Country: EU (occurrence: EU)
  Receive Date: 20250708
  Receipt Date: 20250901
  Transmission Date: 20251021
  Serious: Yes (Other)
  Sender: ALEXION PHARMACEUTICALS
  Company Number: EU-ASTRAZENECA-202507EEA001924DE

PATIENT
  Age: 18 Year
  Sex: Male
  Weight: 58.8 kg

DRUGS (2)
  1. DAPAGLIFLOZIN [Suspect]
     Active Substance: DAPAGLIFLOZIN
     Indication: Chronic kidney disease
     Dosage: 10 MILLIGRAM, QD
     Dates: start: 20250603, end: 20250701
  2. RAMIPRIL [Concomitant]
     Active Substance: RAMIPRIL
     Indication: Alport^s syndrome
     Dosage: 6.25 MILLIGRAM, QD
     Dates: start: 2013

REACTIONS (7)
  - Weight decreased [Recovered/Resolved]
  - Hyponatraemia [Recovered/Resolved]
  - Syncope [Unknown]
  - Neurological symptom [Unknown]
  - Dizziness [Unknown]
  - Blood urea increased [Unknown]
  - Blood pressure decreased [Unknown]

NARRATIVE: CASE EVENT DATE: 20250629
